FAERS Safety Report 19002863 (Version 1)
Quarter: 2021Q1

REPORT INFORMATION
  Report Type: Spontaneous
  Country: DK (occurrence: DK)
  Receive Date: 20210312
  Receipt Date: 20210312
  Transmission Date: 20210420
  Serious: Yes (Life-Threatening)
  Sender: FDA-Public Use
  Company Number: DK-ROCHE-2785094

PATIENT
  Age: 71 Year
  Sex: Female

DRUGS (5)
  1. QUETIAPINE. [Concomitant]
     Active Substance: QUETIAPINE
     Indication: MENTAL DISORDER
     Dates: start: 20200724
  2. ACTILYSE [Suspect]
     Active Substance: ALTEPLASE
     Indication: CEREBROVASCULAR ACCIDENT
     Dosage: SUPPOSED 90 MG 10% AS BOLUS AND 90% AS INFUSION BUT STOPPED AT 60 MG.
     Route: 042
     Dates: start: 20210210, end: 20210210
  3. ISOCARBOXAZID [Concomitant]
     Active Substance: ISOCARBOXAZID
     Indication: DEPRESSION
     Dates: start: 20180904
  4. CLOZAPINE. [Concomitant]
     Active Substance: CLOZAPINE
     Indication: MENTAL DISORDER
     Dates: start: 20190221
  5. LITHIUM. [Concomitant]
     Active Substance: LITHIUM
     Indication: PSYCHIATRIC DISORDER PROPHYLAXIS
     Dates: start: 20200723

REACTIONS (1)
  - Cardiac arrest [Recovered/Resolved]

NARRATIVE: CASE EVENT DATE: 20210210
